FAERS Safety Report 4556497-X (Version None)
Quarter: 2005Q1

REPORT INFORMATION
  Report Type: 
  Country: None (occurrence: None)
  Receive Date: 20050118
  Receipt Date: 20050106
  Transmission Date: 20050727
  Serious: Yes (Other)
  Sender: FDA-Public Use
  Company Number: 2005-01-0367

PATIENT
  Age: 61 Year
  Sex: Male
  Weight: 99.7913 kg

DRUGS (10)
  1. INTRON A [Suspect]
     Indication: MALIGNANT MELANOMA STAGE III
     Dosage: 44 MU 5XWK; INTRAVENOUS
     Route: 042
     Dates: start: 20041115, end: 20041221
  2. WELLBUTRIN [Suspect]
     Indication: DEPRESSION
     Dosage: 300 MG BID; ORAL
     Route: 048
     Dates: start: 20041116
  3. ALLOPURINOL [Suspect]
     Indication: GOUT
     Dosage: 100 MG HS; ORAL
     Route: 048
  4. CLONAZEPAM [Suspect]
     Indication: DEPRESSION
     Dosage: 0.5 MG QHS; ORAL
     Route: 048
  5. TRAZODONE [Suspect]
     Indication: DEPRESSION
     Dosage: 50 MG QHS; ORAL
     Route: 048
  6. ZOCOR [Suspect]
     Indication: BLOOD CHOLESTEROL INCREASED
     Dosage: 10 MG QD; ORAL
     Route: 048
  7. REMERON [Suspect]
     Indication: DEPRESSION
     Dosage: 45 MG HS; ORAL
     Route: 048
  8. MULTI-VITAMINS [Suspect]
     Dosage: PRN; ORAL
     Route: 048
  9. GLUCOSAMINE [Suspect]
     Dosage: PRN; ORAL
     Route: 048
  10. COMPAZINE [Suspect]
     Indication: NAUSEA
     Dosage: 10 MG PRN; ORAL
     Route: 048
     Dates: start: 20041115

REACTIONS (7)
  - ASTHENIA [None]
  - CONFUSIONAL STATE [None]
  - DECREASED APPETITE [None]
  - DEHYDRATION [None]
  - DRUG INTERACTION [None]
  - EATING DISORDER [None]
  - LETHARGY [None]
